FAERS Safety Report 13060068 (Version 5)
Quarter: 2018Q1

REPORT INFORMATION
  Report Type: Report from Study
  Country: None (occurrence: US)
  Receive Date: 20161223
  Receipt Date: 20180105
  Transmission Date: 20180508
  Serious: Yes (Hospitalization, Other)
  Sender: FDA-Public Use
  Company Number: US-ABBVIE-16K-163-1776967-00

PATIENT
  Age: 65 Year
  Sex: Male
  Weight: 64.47 kg

DRUGS (6)
  1. PROZAC [Concomitant]
     Active Substance: FLUOXETINE HYDROCHLORIDE
     Indication: DEPRESSION
  2. PRILOSEC [Concomitant]
     Active Substance: OMEPRAZOLE MAGNESIUM
     Indication: GASTROOESOPHAGEAL REFLUX DISEASE
  3. HUMIRA [Suspect]
     Active Substance: ADALIMUMAB
     Indication: PSORIATIC ARTHROPATHY
     Route: 058
     Dates: start: 2016, end: 2016
  4. VITAMIN B12 [Concomitant]
     Active Substance: CYANOCOBALAMIN
     Indication: PRODUCT USED FOR UNKNOWN INDICATION
  5. HUMIRA [Suspect]
     Active Substance: ADALIMUMAB
     Indication: CROHN^S DISEASE
     Route: 058
     Dates: start: 201610
  6. HUMIRA [Suspect]
     Active Substance: ADALIMUMAB
     Indication: COLITIS ULCERATIVE
     Route: 058
     Dates: start: 20160122, end: 201605

REACTIONS (19)
  - Vesical fistula [Recovered/Resolved]
  - Weight decreased [Recovered/Resolved]
  - Vesical fistula [Unknown]
  - Colitis ulcerative [Not Recovered/Not Resolved]
  - Infected fistula [Recovered/Resolved]
  - Cystitis [Unknown]
  - Gastric fistula [Not Recovered/Not Resolved]
  - Cataract [Recovering/Resolving]
  - Vomiting [Unknown]
  - Pain [Unknown]
  - Gastric infection [Recovered/Resolved]
  - Bladder perforation [Not Recovered/Not Resolved]
  - Feeling abnormal [Unknown]
  - Gastric fistula [Recovered/Resolved]
  - Bladder perforation [Recovered/Resolved]
  - Proctocolectomy [Unknown]
  - Urinary fistula [Unknown]
  - Umbilical hernia [Not Recovered/Not Resolved]
  - Urinary bladder abscess [Unknown]

NARRATIVE: CASE EVENT DATE: 2016
